FAERS Safety Report 6977234-5 (Version None)
Quarter: 2010Q3

REPORT INFORMATION
  Report Type: 
  Country: None (occurrence: None)
  Receive Date: 20100910
  Receipt Date: 20100830
  Transmission Date: 20110219
  Serious: Yes (Hospitalization)
  Sender: FDA-Public Use
  Company Number: US-WYE-H17249910

PATIENT
  Sex: Female

DRUGS (3)
  1. PRISTIQ [Suspect]
     Indication: DEPRESSION
     Route: 048
     Dates: start: 20100501
  2. PREDNISONE [Suspect]
     Indication: COLITIS ULCERATIVE
     Dosage: UNKNOWN
  3. SOLU-MEDROL [Suspect]
     Indication: COLITIS ULCERATIVE
     Dosage: UNKNOWN

REACTIONS (9)
  - CONDITION AGGRAVATED [None]
  - DRUG INEFFECTIVE [None]
  - FALL [None]
  - HYPOAESTHESIA [None]
  - MEDICATION RESIDUE [None]
  - MULTIPLE SCLEROSIS [None]
  - PRURITUS [None]
  - SWELLING [None]
  - WEIGHT INCREASED [None]
